FAERS Safety Report 5247749-9 (Version None)
Quarter: 2007Q1

REPORT INFORMATION
  Report Type: 
  Country: None (occurrence: None)
  Receive Date: 20070227
  Receipt Date: 20070215
  Transmission Date: 20070707
  Serious: Yes (Hospitalization, Other)
  Sender: FDA-Public Use
  Company Number: PHEH2007US02008

PATIENT
  Age: 85 Year
  Sex: Female

DRUGS (3)
  1. EXJADE [Suspect]
     Indication: MYELODYSPLASTIC SYNDROME
     Dosage: 1000 MG, QD
     Route: 048
     Dates: start: 20060811, end: 20070201
  2. PIMOZIDE [Concomitant]
  3. STEROIDS NOS [Concomitant]

REACTIONS (40)
  - ANAEMIA [None]
  - AORTIC STENOSIS [None]
  - ATRIAL FIBRILLATION [None]
  - BLOOD ALBUMIN DECREASED [None]
  - BLOOD CREATININE INCREASED [None]
  - BLOOD GLUCOSE INCREASED [None]
  - BLOOD UREA INCREASED [None]
  - BREATH SOUNDS ABNORMAL [None]
  - CARDIAC FAILURE [None]
  - CULTURE URINE POSITIVE [None]
  - DECREASED APPETITE [None]
  - DIARRHOEA [None]
  - DYSPHAGIA [None]
  - DYSPNOEA [None]
  - ECHOCARDIOGRAM ABNORMAL [None]
  - EJECTION FRACTION DECREASED [None]
  - ESCHERICHIA INFECTION [None]
  - FALL [None]
  - HAEMATOCRIT DECREASED [None]
  - HAEMOGLOBIN DECREASED [None]
  - HUMERUS FRACTURE [None]
  - HYPERALBUMINAEMIA [None]
  - HYPOTENSION [None]
  - HYPOTHYROIDISM [None]
  - INTERNATIONAL NORMALISED RATIO INCREASED [None]
  - LACTIC ACIDOSIS [None]
  - LEUKOCYTOSIS [None]
  - MALNUTRITION [None]
  - METABOLIC ACIDOSIS [None]
  - MUSCULOSKELETAL PAIN [None]
  - MYELODYSPLASTIC SYNDROME [None]
  - PCO2 DECREASED [None]
  - PLATELET COUNT DECREASED [None]
  - PULMONARY HYPERTENSION [None]
  - RENAL FAILURE ACUTE [None]
  - STAPHYLOCOCCAL INFECTION [None]
  - ULTRASOUND DOPPLER NORMAL [None]
  - URINARY TRACT INFECTION BACTERIAL [None]
  - WHEEZING [None]
  - X-RAY LIMB ABNORMAL [None]
